FAERS Safety Report 7483439-X (Version None)
Quarter: 2011Q2

REPORT INFORMATION
  Report Type: 
  Country: None (occurrence: None)
  Receive Date: 20110512
  Receipt Date: 20110512
  Transmission Date: 20111010
  Serious: No
  Sender: FDA-Public Use
  Company Number: None

PATIENT
  Age: 10 Month
  Sex: Male

DRUGS (1)
  1. TESTOSTERONE [Suspect]

REACTIONS (2)
  - ACCIDENTAL EXPOSURE [None]
  - PRECOCIOUS PUBERTY [None]
